FAERS Safety Report 6068933-0 (Version None)
Quarter: 2009Q1

REPORT INFORMATION
  Report Type: 
  Country: None (occurrence: None)
  Receive Date: 20090206
  Receipt Date: 20090127
  Transmission Date: 20090719
  Serious: Yes (Disabling)
  Sender: FDA-Public Use
  Company Number: GB-SANOFI-SYNTHELABO-A01200900594

PATIENT
  Age: 61 Year
  Sex: Male
  Weight: 87 kg

DRUGS (4)
  1. INTRACAVERNOSAL INJECTION NOS [Concomitant]
     Indication: ERECTILE DYSFUNCTION
  2. CAPECITABINE [Suspect]
     Indication: COLORECTAL CANCER METASTATIC
     Dosage: 2 G/M2 DAYS 1-14
     Route: 048
  3. ELOXATIN [Suspect]
     Indication: COLORECTAL CANCER METASTATIC
     Route: 041
  4. BEVACIZUMAB [Suspect]
     Indication: COLORECTAL CANCER METASTATIC
     Route: 041

REACTIONS (2)
  - ERECTILE DYSFUNCTION [None]
  - NEUROPATHY PERIPHERAL [None]
